FAERS Safety Report 7389330-1 (Version None)
Quarter: 2011Q2

REPORT INFORMATION
  Report Type: 
  Country: None (occurrence: None)
  Receive Date: 20110401
  Receipt Date: 20110323
  Transmission Date: 20111010
  Serious: Yes (Congenital Anomaly)
  Sender: FDA-Public Use
  Company Number: A0919243A

PATIENT
  Sex: Male

DRUGS (5)
  1. GLUCOVANCE [Concomitant]
     Route: 064
  2. PAXIL [Suspect]
     Dosage: 40MG PER DAY
     Route: 064
  3. LIPITOR [Concomitant]
     Route: 064
  4. TRAZODONE HCL [Concomitant]
     Route: 064
  5. AVANDIA [Concomitant]
     Route: 064

REACTIONS (3)
  - VENTRICULAR SEPTAL DEFECT [None]
  - DRUG EXPOSURE DURING PREGNANCY [None]
  - HYDROCELE [None]
